FAERS Safety Report 7132011-X (Version None)
Quarter: 2010Q4

REPORT INFORMATION
  Report Type: 
  Country: None (occurrence: None)
  Receive Date: 20101130
  Receipt Date: 20101130
  Transmission Date: 20110411
  Serious: Yes (Other)
  Sender: FDA-Public Use
  Company Number: None

PATIENT
  Age: 71 Year
  Sex: Male
  Weight: 77.1115 kg

DRUGS (2)
  1. BICALUTAMIDE [Suspect]
     Indication: PROSTATE CANCER RECURRENT
     Dosage: ONE TABLET DAY PO
     Route: 048
     Dates: start: 20101022, end: 20101125
  2. LUPRON [Suspect]
     Indication: PROSTATE CANCER RECURRENT
     Dosage: ONE INJECTION 3 MONTHS IM
     Route: 030
     Dates: start: 20101102, end: 20101125

REACTIONS (1)
  - SCOTOMA [None]
